FAERS Safety Report 8842827 (Version 1)
Quarter: 2012Q4

REPORT INFORMATION
  Report Type: 
  Country: US (occurrence: US)
  Receive Date: 20121016
  Receipt Date: 20121016
  Transmission Date: 20130627
  Serious: No
  Sender: FDA-Public Use
  Company Number: US-ASTRAZENECA-2012SE75947

PATIENT
  Age: 65 Year
  Sex: Female
  Weight: 52.2 kg

DRUGS (4)
  1. NEXIUM [Suspect]
     Indication: GASTROOESOPHAGEAL REFLUX DISEASE
     Route: 048
     Dates: start: 2009, end: 201204
  2. NEXIUM [Suspect]
     Indication: GASTROOESOPHAGEAL REFLUX DISEASE
     Route: 048
     Dates: start: 201204, end: 201204
  3. NEXIUM [Suspect]
     Indication: GASTROOESOPHAGEAL REFLUX DISEASE
     Route: 048
     Dates: start: 201204
  4. LIPITOR [Concomitant]

REACTIONS (5)
  - Gastrooesophageal reflux disease [Unknown]
  - Discomfort [Unknown]
  - Drug dependence [Unknown]
  - Intentional drug misuse [Unknown]
  - Off label use [Unknown]
